FAERS Safety Report 12435677 (Version 1)
Quarter: 2016Q2

REPORT INFORMATION
  Report Type: Spontaneous
  Country: US (occurrence: US)
  Receive Date: 20160603
  Receipt Date: 20160603
  Transmission Date: 20160815
  Serious: No
  Sender: FDA-Public Use
  Company Number: US-ROCHE-1692107

PATIENT
  Sex: Male

DRUGS (3)
  1. XELODA [Suspect]
     Active Substance: CAPECITABINE
     Indication: NEOPLASM MALIGNANT
     Route: 048
  2. XELODA [Suspect]
     Active Substance: CAPECITABINE
     Route: 048
     Dates: start: 20160105
  3. XELODA [Suspect]
     Active Substance: CAPECITABINE
     Dosage: FOR 14 DAYS
     Route: 048

REACTIONS (7)
  - Fatigue [Unknown]
  - Arthralgia [Unknown]
  - Hypoaesthesia [Unknown]
  - Nausea [Unknown]
  - Arthritis [Unknown]
  - Muscular weakness [Not Recovered/Not Resolved]
  - Fatigue [Not Recovered/Not Resolved]
